FAERS Safety Report 5504568-3 (Version None)
Quarter: 2007Q4

REPORT INFORMATION
  Report Type: 
  Country: None (occurrence: None)
  Receive Date: 20071031
  Receipt Date: 20071016
  Transmission Date: 20080405
  Serious: Yes (Life-Threatening, Hospitalization)
  Sender: FDA-Public Use
  Company Number: 2007S1010669

PATIENT
  Age: 57 Year
  Sex: Female

DRUGS (3)
  1. FLUOXETINE [Suspect]
     Indication: DRUG USE FOR UNKNOWN INDICATION
     Dosage: 20 MG ORAL
     Route: 048
     Dates: start: 20070920, end: 20071008
  2. BENDROFLUMETHIAZIDE [Concomitant]
  3. LISINOPRIL [Concomitant]

REACTIONS (6)
  - BLOOD PRESSURE DECREASED [None]
  - OXYGEN SATURATION INCREASED [None]
  - PANCREATITIS ACUTE [None]
  - PYREXIA [None]
  - RESPIRATION ABNORMAL [None]
  - WHITE BLOOD CELL COUNT INCREASED [None]
